FAERS Safety Report 15605330 (Version 1)
Quarter: 2018Q4

REPORT INFORMATION
  Report Type: Spontaneous
  Country: FR (occurrence: FR)
  Receive Date: 20181112
  Receipt Date: 20181112
  Transmission Date: 20190205
  Serious: Yes (Hospitalization)
  Sender: FDA-Public Use
  Company Number: FR-ACCORD-091744

PATIENT
  Age: 62 Year
  Sex: Male

DRUGS (19)
  1. AMLODIPINE [Concomitant]
     Active Substance: AMLODIPINE BESYLATE
     Route: 048
     Dates: start: 20160906, end: 20160919
  2. DAUNORUBICIN [Concomitant]
     Active Substance: DAUNORUBICIN
     Route: 042
  3. METHOTREXATE. [Suspect]
     Active Substance: METHOTREXATE
     Indication: ACUTE LYMPHOCYTIC LEUKAEMIA
     Route: 037
     Dates: start: 20160829, end: 20160829
  4. AMIKLIN [Concomitant]
     Active Substance: AMIKACIN SULFATE
     Route: 042
     Dates: start: 20160909, end: 20160924
  5. VINDESINE/VINDESINE SULFATE [Concomitant]
     Active Substance: VINDESINE
     Route: 042
  6. AMBISOME [Concomitant]
     Active Substance: AMPHOTERICIN B
     Dosage: 50 MG, POWDER FOR SUSPENSION OF LIPOSOMES FOR INFUSION
     Route: 042
     Dates: start: 20160902, end: 20160910
  7. GRANOCYTE [Concomitant]
     Active Substance: LENOGRASTIM
     Route: 042
     Dates: start: 20160917
  8. ACLOTINE [Concomitant]
     Active Substance: ANTITHROMBIN III HUMAN
     Dosage: 100 UI/ML, POWDER AND SOLVENT FOR SOLUTION FOR INJECTION.
     Route: 042
     Dates: start: 20160912
  9. ZELITREX [Concomitant]
     Active Substance: VALACYCLOVIR HYDROCHLORIDE
     Route: 048
  10. MEROPENEM. [Concomitant]
     Active Substance: MEROPENEM
     Route: 042
     Dates: start: 20160910, end: 20161001
  11. PENTACARINAT [Concomitant]
     Active Substance: PENTAMIDINE ISETHIONATE
     Dosage: 300 MG, POWDER FOR AEROSOL AND FOR PARENTERAL USE
     Route: 055
     Dates: end: 20160825
  12. KIDROLASE [Suspect]
     Active Substance: ASPARAGINASE
     Indication: ACUTE LYMPHOCYTIC LEUKAEMIA
     Route: 042
     Dates: start: 20160901, end: 20160910
  13. CIFLOX [Suspect]
     Active Substance: CIPROFLOXACIN
     Indication: ACUTE LYMPHOCYTIC LEUKAEMIA
     Route: 042
     Dates: start: 20160910, end: 20160915
  14. VINCRISTINE [Concomitant]
     Active Substance: VINCRISTINE
     Route: 042
  15. BISOPROLOL [Concomitant]
     Active Substance: BISOPROLOL
     Route: 048
     Dates: end: 20160927
  16. CYCLOPHOSPHAMIDE/CYCLOPHOSPHAMIDE MONOHYDRATE [Suspect]
     Active Substance: CYCLOPHOSPHAMIDE
     Indication: PRODUCT USED FOR UNKNOWN INDICATION
     Route: 042
     Dates: start: 20160901, end: 20160915
  17. MABTHERA [Concomitant]
     Active Substance: RITUXIMAB
     Route: 042
     Dates: start: 20160901, end: 20160902
  18. VANCOMYCIN [Concomitant]
     Active Substance: VANCOMYCIN
     Route: 042
     Dates: start: 20160902, end: 20160910
  19. TAZOCILLINE [Concomitant]
     Active Substance: PIPERACILLIN SODIUM\TAZOBACTAM SODIUM
     Route: 042
     Dates: start: 20160902, end: 20160910

REACTIONS (3)
  - Cholestasis [Not Recovered/Not Resolved]
  - Hepatic steatosis [Not Recovered/Not Resolved]
  - Cholangitis [Not Recovered/Not Resolved]

NARRATIVE: CASE EVENT DATE: 20160921
